FAERS Safety Report 7951156-5 (Version None)
Quarter: 2011Q4

REPORT INFORMATION
  Report Type: 
  Country: None (occurrence: None)
  Receive Date: 20111128
  Receipt Date: 20111115
  Transmission Date: 20120403
  Serious: Yes (Hospitalization)
  Sender: FDA-Public Use
  Company Number: 2010JP000114

PATIENT
  Age: 73 Year
  Sex: Female
  Weight: 51 kg

DRUGS (3)
  1. PREDNISOLONE [Suspect]
     Indication: POLYMYOSITIS
     Dosage: 30 MG, UID/QD, ORAL
     Route: 048
     Dates: start: 20090101
  2. PROGRAF [Suspect]
     Indication: POLYMYOSITIS
     Dosage: 3 MG, UID/QD, ORAL
     Route: 048
     Dates: start: 20090101
  3. PROGRAF [Suspect]
     Indication: POLYMYOSITIS
     Dosage: ORAL
     Route: 048
     Dates: start: 20090612

REACTIONS (4)
  - INFECTION IN AN IMMUNOCOMPROMISED HOST [None]
  - LOWER RESPIRATORY TRACT INFECTION BACTERIAL [None]
  - NOCARDIOSIS [None]
  - OFF LABEL USE [None]
